FAERS Safety Report 19548724 (Version 1)
Quarter: 2021Q3

REPORT INFORMATION
  Report Type: Spontaneous
  Country: DE (occurrence: DE)
  Receive Date: 20210715
  Receipt Date: 20210715
  Transmission Date: 20211014
  Serious: Yes (Other)
  Sender: FDA-Public Use
  Company Number: DE-ABBVIE-21K-062-3988939-00

PATIENT
  Sex: Male

DRUGS (5)
  1. SKYRIZI [Suspect]
     Active Substance: RISANKIZUMAB-RZAA
     Indication: PSORIASIS
     Dosage: ON WEEK 0
     Route: 058
     Dates: start: 20200924, end: 20200924
  2. SKYRIZI [Suspect]
     Active Substance: RISANKIZUMAB-RZAA
     Dosage: FROM WEEK 16
     Route: 058
     Dates: start: 2021
  3. COVID?19 VACCINE [Concomitant]
     Route: 030
     Dates: start: 20210519, end: 20210519
  4. COVID?19 VACCINE [Concomitant]
     Indication: COVID-19 PROPHYLAXIS
     Route: 030
     Dates: start: 20210406, end: 20210406
  5. SKYRIZI [Suspect]
     Active Substance: RISANKIZUMAB-RZAA
     Dosage: ON WEEK 4
     Route: 058
     Dates: start: 2021, end: 2021

REACTIONS (1)
  - Deep vein thrombosis [Unknown]
